FAERS Safety Report 12339119 (Version 1)
Quarter: 2016Q2

REPORT INFORMATION
  Report Type: Spontaneous
  Country: US (occurrence: US)
  Receive Date: 20160505
  Receipt Date: 20160505
  Transmission Date: 20160815
  Serious: No
  Sender: FDA-Public Use
  Company Number: US-FRESENIUS KABI-FK201602503

PATIENT
  Age: 28 Year
  Sex: Female

DRUGS (1)
  1. HALOPERIDOL DECANOATE INJECTION [Suspect]
     Active Substance: HALOPERIDOL DECANOATE
     Indication: BORDERLINE PERSONALITY DISORDER
     Route: 030
     Dates: start: 20160119

REACTIONS (2)
  - Rash [Unknown]
  - Unevaluable event [Unknown]
